FAERS Safety Report 4414129-5 (Version None)
Quarter: 2004Q3

REPORT INFORMATION
  Report Type: 
  Country: None (occurrence: None)
  Receive Date: 20040728
  Receipt Date: 20040716
  Transmission Date: 20050211
  Serious: Yes (Hospitalization)
  Sender: FDA-Public Use
  Company Number: STA-AE-04-MTX-310

PATIENT
  Age: 48 Year
  Sex: Female

DRUGS (8)
  1. METHOTREXATE [Suspect]
     Indication: RHEUMATOID ARTHRITIS
     Dosage: 15 MG 1X PER 1 WK, ORAL
     Route: 048
     Dates: start: 19980515, end: 20040101
  2. METHOTREXATE [Suspect]
     Indication: RHEUMATOID ARTHRITIS
     Dosage: INCREASED DOSAGE , ORAL
     Route: 048
     Dates: start: 20040101
  3. PREDNISONE TAB [Suspect]
     Indication: RHEUMATOID ARTHRITIS
     Dosage: 5 MG 1X PER 1 DAY, ORAL
     Route: 048
     Dates: start: 20040101
  4. NAPROSYN [Suspect]
     Indication: RHEUMATOID ARTHRITIS
     Dosage: 2 DOSE 1X PER 1 DAY, ORAL
     Route: 048
     Dates: start: 19960115
  5. REMICADE [Suspect]
     Indication: RHEUMATOID ARTHRITIS
     Dosage: 11 CYCLES AT 3 MG/KG PER CYCLE, INTRAVENOUS
     Route: 042
     Dates: start: 20020819, end: 20040101
  6. REMICADE [Suspect]
     Indication: RHEUMATOID ARTHRITIS
     Dosage: 3 CYCLES AT 4MG/KG PER CYCLE, INTRAVENOUS
     Route: 042
     Dates: start: 20040101, end: 20040608
  7. FOLIC ACID [Concomitant]
  8. PROPFAN (CAFFEINE/CARBASALATE CALCIUM/CHLORPHENAMINE MALEATE/DEXTROPRO [Concomitant]

REACTIONS (3)
  - DRUG INEFFECTIVE [None]
  - LOBAR PNEUMONIA [None]
  - PULMONARY TUBERCULOSIS [None]
